FAERS Safety Report 7240193-4 (Version None)
Quarter: 2011Q1

REPORT INFORMATION
  Report Type: 
  Country: None (occurrence: None)
  Receive Date: 20110124
  Receipt Date: 20110111
  Transmission Date: 20110831
  Serious: Yes (Hospitalization, Other)
  Sender: FDA-Public Use
  Company Number: US-ELI_LILLY_AND_COMPANY-US201101003456

PATIENT
  Age: 83 Year
  Sex: Female

DRUGS (5)
  1. KLONOPIN [Concomitant]
  2. OLANZAPINE [Suspect]
     Indication: SOMATIC DELUSION
     Dosage: 2.5 MG, DAILY (1/D)
     Route: 048
  3. MIRTAZAPINE [Concomitant]
  4. PREVACID [Concomitant]
  5. LOZOL [Concomitant]

REACTIONS (3)
  - NEUTROPENIA [None]
  - PYREXIA [None]
  - THROMBOCYTOPENIA [None]
